FAERS Safety Report 7010666-8 (Version None)
Quarter: 2010Q3

REPORT INFORMATION
  Report Type: 
  Country: None (occurrence: None)
  Receive Date: 20100923
  Receipt Date: 20100916
  Transmission Date: 20110219
  Serious: Yes (Death, Hospitalization)
  Sender: FDA-Public Use
  Company Number: PL-CELGENEUS-129-C5013-10050663

PATIENT
  Sex: Male
  Weight: 89 kg

DRUGS (6)
  1. CC-5013 [Suspect]
     Route: 048
     Dates: start: 20100426, end: 20100507
  2. TAZOBACTAM [Suspect]
     Indication: PRODUCT USED FOR UNKNOWN INDICATION
     Route: 065
  3. RITUXIMAB [Suspect]
     Indication: DISEASE PROGRESSION
     Route: 065
     Dates: start: 20100501
  4. MITOXANTRONE [Suspect]
     Indication: DISEASE PROGRESSION
     Route: 065
     Dates: start: 20100501
  5. CYTARABINE [Suspect]
     Indication: DISEASE PROGRESSION
     Route: 065
     Dates: start: 20100501
  6. DEXAMETHASONE [Suspect]
     Indication: DISEASE PROGRESSION
     Route: 065
     Dates: start: 20100501

REACTIONS (3)
  - MULTI-ORGAN FAILURE [None]
  - SEPTIC SHOCK [None]
  - TUMOUR FLARE [None]
